FAERS Safety Report 9799453 (Version 1)
Quarter: 2014Q1

REPORT INFORMATION
  Report Type: Spontaneous
  Country: US (occurrence: None)
  Receive Date: 20140103
  Receipt Date: 20140103
  Transmission Date: 20141002
  Serious: No
  Sender: FDA-Public Use
  Company Number: None

PATIENT
  Age: 68 Year
  Sex: Male
  Weight: 90.4 kg

DRUGS (1)
  1. HCTZ/LISINOPRIL [Suspect]
     Dosage: 1 TAB
     Route: 048
     Dates: start: 20130729, end: 20131007

REACTIONS (1)
  - Angioedema [None]
